FAERS Safety Report 13112369 (Version 1)
Quarter: 2017Q1

REPORT INFORMATION
  Report Type: Report from Study
  Country: NL (occurrence: NL)
  Receive Date: 20170113
  Receipt Date: 20170113
  Transmission Date: 20170428
  Serious: Yes (Hospitalization)
  Sender: FDA-Public Use
  Company Number: NL-AMGEN-NLDSL2017003396

PATIENT
  Age: 68 Year
  Sex: Female

DRUGS (14)
  1. FUROSEMIDE. [Concomitant]
     Active Substance: FUROSEMIDE
     Dosage: 20 MG, QD
     Dates: start: 20160921
  2. METOCLOPRAMIDE HCL [Concomitant]
     Active Substance: METOCLOPRAMIDE HYDROCHLORIDE
     Dosage: 100 MG, QD
     Dates: start: 20161005
  3. OXYCODON HCL TEVA [Concomitant]
     Dosage: 5 MG, UNK
     Dates: start: 20160909, end: 20161207
  4. PANTOPRAZOL PENSA [Concomitant]
     Active Substance: PANTOPRAZOLE SODIUM
     Dosage: 40 MG, QD
     Dates: start: 20160909
  5. FEMARA [Concomitant]
     Active Substance: LETROZOLE
     Dosage: 2.5 MG, QD
     Dates: start: 20161005
  6. LYRICA [Concomitant]
     Active Substance: PREGABALIN
     Dosage: 25 MG, UNK
     Dates: start: 20161130
  7. MACROGOL EN ELEKTROLYTEN [Concomitant]
     Dosage: 13.7 G, QD
     Dates: start: 20160909
  8. PREGABALIN ACCORD [Concomitant]
     Dosage: 25 MG, QD
     Dates: start: 20161024
  9. XGEVA [Suspect]
     Active Substance: DENOSUMAB
     Indication: BREAST CANCER
     Dosage: 120 MG, Q4WK
     Route: 058
  10. METOPROLOLSUCCINAAT SANDOZ [Concomitant]
     Dosage: 100 MG, QD
     Dates: start: 20160909
  11. FENTANYL MATRIX SANDOZ [Concomitant]
     Dosage: 12 MUG, UNK
     Dates: start: 20161221
  12. HALOPERIDOL. [Concomitant]
     Active Substance: HALOPERIDOL
     Dosage: 1 MG, QD
     Dates: start: 20161221
  13. MOVICOLON [Concomitant]
     Active Substance: POLYETHYLENE GLYCOL 3350\POTASSIUM CHLORIDE\SODIUM BICARBONATE\SODIUM CHLORIDE
     Dosage: UNK
     Dates: start: 20160909
  14. CALCIUM CARBONATE W/COLECALCIFEROL [Concomitant]
     Active Substance: CALCIUM CARBONATE\CHOLECALCIFEROL
     Dosage: 2.5G/880IE, QD
     Dates: start: 20160909

REACTIONS (1)
  - Pleural effusion [Unknown]
